FAERS Safety Report 11681429 (Version 1)
Quarter: 2015Q4

REPORT INFORMATION
  Report Type: Spontaneous
  Country: US (occurrence: None)
  Receive Date: 20151028
  Receipt Date: 20151028
  Transmission Date: 20160304
  Serious: Yes (Hospitalization, Disabling)
  Sender: FDA-Public Use
  Company Number: None

PATIENT
  Age: 63 Year
  Sex: Male
  Weight: 83.92 kg

DRUGS (11)
  1. FOLIC ACID. [Concomitant]
     Active Substance: FOLIC ACID
  2. VITAMIN B1 [Concomitant]
     Active Substance: THIAMINE HYDROCHLORIDE
  3. THIAMINE. [Concomitant]
     Active Substance: THIAMINE
  4. SAPHRIS (ASENOPINE) [Concomitant]
  5. LITHIUM CARBONATE. [Concomitant]
     Active Substance: LITHIUM CARBONATE
  6. LITHIUM CARBONATE. [Suspect]
     Active Substance: LITHIUM CARBONATE
     Indication: BIPOLAR DISORDER
     Dosage: MOUTH
     Dates: start: 201509
  7. FOLIC ACID. [Concomitant]
     Active Substance: FOLIC ACID
  8. ATIVAN [Concomitant]
     Active Substance: LORAZEPAM
  9. MULTI VITAMIN [Concomitant]
     Active Substance: VITAMINS
  10. MULTI-VITAMIN [Concomitant]
     Active Substance: .ALPHA.-TOCOPHEROL ACETATE, DL-\ASCORBIC ACID\CYANOCOBALAMIN\FLUORIDE ION\FOLIC ACID\NIACIN\PYRIDOXINE\RIBOFLAVIN\THIAMINE\VITAMIN A\VITAMIN D
  11. VITAMIN B-1 [Concomitant]

REACTIONS (5)
  - Decreased appetite [None]
  - Rash macular [None]
  - Dyspnoea [None]
  - Skin fissures [None]
  - Furuncle [None]

NARRATIVE: CASE EVENT DATE: 201510
